FAERS Safety Report 15128627 (Version 2)
Quarter: 2019Q1

REPORT INFORMATION
  Report Type: Report from Study
  Country: US (occurrence: US)
  Receive Date: 20180711
  Receipt Date: 20190201
  Transmission Date: 20190417
  Serious: Yes (Other)
  Sender: FDA-Public Use
  Company Number: PHEH2018US021796

PATIENT
  Sex: Male

DRUGS (1)
  1. ENTRESTO [Suspect]
     Active Substance: SACUBITRIL\VALSARTAN
     Indication: CARDIAC FAILURE
     Dosage: UNK, BID
     Route: 048

REACTIONS (8)
  - Sleep apnoea syndrome [Unknown]
  - Gait disturbance [Unknown]
  - Pneumonia [Unknown]
  - Malaise [Unknown]
  - Drug ineffective [Unknown]
  - Pain in extremity [Unknown]
  - Overweight [Unknown]
  - Sleep disorder [Unknown]
